FAERS Safety Report 24237544 (Version 1)
Quarter: 2024Q3

REPORT INFORMATION
  Report Type: Spontaneous
  Country: JP (occurrence: JP)
  Receive Date: 20240822
  Receipt Date: 20240822
  Transmission Date: 20241016
  Serious: Yes (Hospitalization)
  Sender: NOVARTIS
  Company Number: JP-002147023-NVSJ2024JP009854

PATIENT
  Age: 23 Year
  Sex: Male

DRUGS (1)
  1. ILARIS [Suspect]
     Active Substance: CANAKINUMAB
     Indication: Muckle-Wells syndrome
     Dosage: 300 MG,EVERY 6 WEEKS
     Route: 058

REACTIONS (7)
  - Intestinal ulcer [Unknown]
  - Melaena [Unknown]
  - Anaemia [Unknown]
  - Pallor [Unknown]
  - Asthenia [Unknown]
  - Ulcer haemorrhage [Unknown]
  - Abdominal pain [Unknown]

NARRATIVE: CASE EVENT DATE: 20230101
